FAERS Safety Report 5698842-8 (Version None)
Quarter: 2008Q2

REPORT INFORMATION
  Report Type: 
  Country: None (occurrence: None)
  Receive Date: 20080408
  Receipt Date: 20060712
  Transmission Date: 20081010
  Serious: Yes (Life-Threatening, Hospitalization)
  Sender: FDA-Public Use
  Company Number: US-BAYER-US-2006-013686

PATIENT
  Age: 66 Year
  Sex: Female
  Weight: 98 kg

DRUGS (12)
  1. ULTRAVIST (PHARMACY BULK) [Suspect]
     Indication: CATHETERISATION CARDIAC
     Dates: start: 20060524, end: 20060524
  2. ATENOLOL [Concomitant]
  3. NORVASC [Concomitant]
  4. LISINOPRIL [Concomitant]
  5. ASPIRIN [Concomitant]
  6. PLAVIX [Concomitant]
  7. PROTONIX [Concomitant]
  8. LORAZEPAM [Concomitant]
  9. NITROGLYCERIN [Concomitant]
  10. BENADRYL ^PFIZER WARNER-LAMBERT^ [Concomitant]
     Indication: PREMEDICATION
     Dosage: UNIT DOSE: 25 MG
     Route: 048
     Dates: start: 20060524, end: 20060524
  11. VALIUM [Concomitant]
     Indication: PREMEDICATION
     Dosage: UNIT DOSE: 5 MG
     Route: 048
     Dates: start: 20060524, end: 20060524
  12. SOLU-CORTEF [Concomitant]
     Indication: PREMEDICATION
     Dates: start: 20060524, end: 20060524

REACTIONS (3)
  - CHEST PAIN [None]
  - CONTRAST MEDIA REACTION [None]
  - HYPOTENSION [None]
